FAERS Safety Report 23453757 (Version 3)
Quarter: 2024Q3

REPORT INFORMATION
  Report Type: Spontaneous
  Country: US (occurrence: US)
  Receive Date: 20240129
  Receipt Date: 20240702
  Transmission Date: 20241016
  Serious: No
  Sender: SANOFI AVENTIS
  Company Number: US-SA-SAC20240122000247

PATIENT
  Age: 9 Year
  Sex: Male

DRUGS (1)
  1. DUPIXENT [Suspect]
     Active Substance: DUPILUMAB
     Indication: Dermatitis atopic
     Dosage: 200 MG, QOW
     Route: 058

REACTIONS (7)
  - Skin wrinkling [Unknown]
  - Skin fissures [Unknown]
  - Dry skin [Unknown]
  - Skin swelling [Unknown]
  - Pruritus [Unknown]
  - Erythema [Unknown]
  - Product dispensing error [Unknown]

NARRATIVE: CASE EVENT DATE: 20240101
